FAERS Safety Report 6370421-9 (Version None)
Quarter: 2009Q3

REPORT INFORMATION
  Report Type: 
  Country: None (occurrence: None)
  Receive Date: 20090923
  Receipt Date: 20090911
  Transmission Date: 20100115
  Serious: Yes (Hospitalization)
  Sender: FDA-Public Use
  Company Number: GB-PURDUE-USA-2009-0040126

PATIENT
  Age: 88 Year
  Sex: Female

DRUGS (7)
  1. TRAMADOL HCL [Suspect]
     Indication: DRUG USE FOR UNKNOWN INDICATION
     Dosage: 400 MG, DAILY
  2. ATENOLOL [Concomitant]
     Dosage: 50 MG, UNK
  3. BENDROFLUMETHIAZIDE [Concomitant]
     Dosage: 2.5 MG, UNK
  4. ENALAPRIL MALEATE [Concomitant]
     Dosage: 40 MG, DAILY
  5. FELODIPINE [Concomitant]
     Dosage: 5 MG, UNK
  6. OMEPRAZOLE [Concomitant]
     Dosage: 20 MG, UNK
  7. SIMVASTATIN [Concomitant]
     Dosage: 40 MG, UNK

REACTIONS (2)
  - CONFUSIONAL STATE [None]
  - FALL [None]
